FAERS Safety Report 8238756-2 (Version None)
Quarter: 2012Q1

REPORT INFORMATION
  Report Type: 
  Country: None (occurrence: None)
  Receive Date: 20120326
  Receipt Date: 20120308
  Transmission Date: 20120608
  Serious: Yes (Hospitalization, Other)
  Sender: FDA-Public Use
  Company Number: 2012P1008151

PATIENT
  Age: 47 Year
  Sex: Male
  Weight: 79.3795 kg

DRUGS (4)
  1. WARFARIN SODIUM [Suspect]
     Indication: THROMBOSIS
     Dosage: 5 MG; TIW; PO; 10 MG; 4IW;PO
     Route: 048
     Dates: start: 20070101
  2. WARFARIN SODIUM [Suspect]
     Indication: HYPERCOAGULATION
     Dosage: 5 MG; TIW; PO; 10 MG; 4IW;PO
     Route: 048
     Dates: start: 20070101
  3. WARFARIN SODIUM [Suspect]
     Indication: THROMBOSIS
     Dosage: 5 MG; TIW; PO; 10 MG; 4IW;PO
     Route: 048
     Dates: start: 20040101
  4. WARFARIN SODIUM [Suspect]
     Indication: HYPERCOAGULATION
     Dosage: 5 MG; TIW; PO; 10 MG; 4IW;PO
     Route: 048
     Dates: start: 20040101

REACTIONS (5)
  - DRUG INEFFECTIVE [None]
  - THROMBOSIS [None]
  - PRODUCT COUNTERFEIT [None]
  - COMPARTMENT SYNDROME [None]
  - INTERNATIONAL NORMALISED RATIO INCREASED [None]
